FAERS Safety Report 4465017-X (Version None)
Quarter: 2004Q3

REPORT INFORMATION
  Report Type: 
  Country: None (occurrence: None)
  Receive Date: 20040929
  Receipt Date: 20040910
  Transmission Date: 20050211
  Serious: Yes (Hospitalization, Other)
  Sender: FDA-Public Use
  Company Number: USA040978014

PATIENT
  Age: 67 Year
  Sex: Male

DRUGS (2)
  1. HUMULIN R [Suspect]
     Dates: start: 20020101
  2. HUMULIN U [Suspect]
     Dates: start: 20020101

REACTIONS (10)
  - ARTHROPATHY [None]
  - BLOOD GLUCOSE INCREASED [None]
  - CARDIAC FAILURE CONGESTIVE [None]
  - CARDIAC OPERATION [None]
  - DYSPNOEA [None]
  - MUSCLE CRAMP [None]
  - OSTEOPOROSIS [None]
  - PARKINSON'S DISEASE [None]
  - PHARMACEUTICAL PRODUCT COMPLAINT [None]
  - STRESS SYMPTOMS [None]
